FAERS Safety Report 5635827-1 (Version None)
Quarter: 2008Q1

REPORT INFORMATION
  Report Type: 
  Country: None (occurrence: None)
  Receive Date: 20080221
  Receipt Date: 20080206
  Transmission Date: 20080703
  Serious: Yes (Hospitalization, Disabling)
  Sender: FDA-Public Use
  Company Number: DSA_31370_2008

PATIENT
  Age: 53 Year
  Sex: Female

DRUGS (4)
  1. ENALAPRIL MALEATE [Suspect]
     Indication: HYPERTENSION
     Dosage: 5 MG QD ORAL
     Route: 048
     Dates: start: 19920101, end: 20050720
  2. TRIAMTERENE AND HYDROCHLOROTHIAZIDE [Concomitant]
  3. ANTRA [Concomitant]
  4. NEXIUM [Concomitant]

REACTIONS (14)
  - ABDOMINAL PAIN [None]
  - ANEURYSM [None]
  - ANGINA PECTORIS [None]
  - ASTHENIA [None]
  - BRONCHITIS [None]
  - DIAPHRAGM MUSCLE WEAKNESS [None]
  - DYSPNOEA [None]
  - ERYSIPELAS [None]
  - FEMORAL NERVE INJURY [None]
  - GASTRITIS [None]
  - HAEMORRHOIDS [None]
  - POST PROCEDURAL COMPLICATION [None]
  - PRODUCTIVE COUGH [None]
  - VOMITING [None]
